FAERS Safety Report 7029056-7 (Version None)
Quarter: 2010Q4

REPORT INFORMATION
  Report Type: 
  Country: None (occurrence: None)
  Receive Date: 20101005
  Receipt Date: 20100930
  Transmission Date: 20110411
  Serious: Yes (Hospitalization)
  Sender: FDA-Public Use
  Company Number: A0884806A

PATIENT
  Sex: Male

DRUGS (2)
  1. AVANDIA [Suspect]
     Dosage: 4MG PER DAY
     Route: 048
     Dates: end: 20070524
  2. AVANDAMET [Suspect]
     Route: 048
     Dates: start: 20040108

REACTIONS (1)
  - MYOCARDIAL INFARCTION [None]
